FAERS Safety Report 21645704 (Version 2)
Quarter: 2022Q4

REPORT INFORMATION
  Report Type: Report from Study
  Country: US (occurrence: US)
  Receive Date: 20221126
  Receipt Date: 20221208
  Transmission Date: 20230112
  Serious: Yes (Other)
  Sender: FDA-Public Use
  Company Number: US-ABBVIE-22K-163-4464895-00

PATIENT
  Age: 75 Year
  Sex: Female
  Weight: 77.11 kg

DRUGS (3)
  1. HUMIRA [Suspect]
     Active Substance: ADALIMUMAB
     Indication: Crohn^s disease
     Dosage: CITRATE FREE, FORM STRENGTH: 40 MG DISCONTINUED IN 2022.
     Route: 058
  2. HUMIRA [Suspect]
     Active Substance: ADALIMUMAB
     Dosage: CITRATE FREE, FORM STRENGTH: 40 MG
     Route: 058
     Dates: start: 202212
  3. MODERNA COVID-19 VACCINE [Concomitant]
     Active Substance: ELASOMERAN
     Indication: COVID-19 immunisation
     Dosage: 1 IN ONCE
     Route: 030

REACTIONS (6)
  - Postoperative wound complication [Unknown]
  - Surgery [Recovering/Resolving]
  - Unevaluable event [Unknown]
  - Colonoscopy abnormal [Unknown]
  - Product physical issue [Unknown]
  - Purulent discharge [Unknown]

NARRATIVE: CASE EVENT DATE: 20221101
